FAERS Safety Report 13849994 (Version 2)
Quarter: 2020Q2

REPORT INFORMATION
  Report Type: Spontaneous
  Country: US (occurrence: US)
  Receive Date: 20170809
  Receipt Date: 20200521
  Transmission Date: 20200713
  Serious: Yes (Death, Hospitalization, Other)
  Sender: FDA-Public Use
  Company Number: US-009507513-1708USA003995

PATIENT
  Sex: Male
  Weight: 97.51 kg

DRUGS (1)
  1. JANUVIA [Suspect]
     Active Substance: SITAGLIPTIN PHOSPHATE
     Indication: TYPE 2 DIABETES MELLITUS
     Dosage: 100 MILLIGRAM, QD
     Route: 048
     Dates: start: 20120408, end: 201408

REACTIONS (14)
  - Dyspnoea [Unknown]
  - Abdominal pain upper [Unknown]
  - Metastases to liver [Unknown]
  - Leukocytosis [Unknown]
  - Hyperhidrosis [Unknown]
  - Tachycardia [Unknown]
  - Dizziness [Unknown]
  - Nausea [Unknown]
  - Chest pain [Unknown]
  - Pancreatic carcinoma [Fatal]
  - Pancreatitis [Not Recovered/Not Resolved]
  - International normalised ratio increased [Unknown]
  - Lymphadenopathy [Unknown]
  - Lung infiltration [Unknown]

NARRATIVE: CASE EVENT DATE: 201407
